FAERS Safety Report 8058591-8 (Version None)
Quarter: 2012Q1

REPORT INFORMATION
  Report Type: 
  Country: None (occurrence: None)
  Receive Date: 20120120
  Receipt Date: 20120111
  Transmission Date: 20120608
  Serious: Yes (Hospitalization)
  Sender: FDA-Public Use
  Company Number: JP-JNJFOC-20120106509

PATIENT
  Age: 76 Year
  Sex: Female

DRUGS (28)
  1. VANCOMYCIN [Concomitant]
     Route: 041
     Dates: start: 20120101, end: 20120106
  2. LEVOFLOXACIN [Suspect]
     Route: 048
     Dates: start: 20120106, end: 20120108
  3. VITAMEDIN [Concomitant]
     Route: 042
     Dates: start: 20120101, end: 20120112
  4. SEISHOKU [Concomitant]
     Dosage: IN 60 MINUTES 9:00
     Route: 041
     Dates: start: 20120109, end: 20120112
  5. DEXTROSE [Concomitant]
     Route: 042
     Dates: start: 20120101, end: 20120108
  6. DEXTROSE [Concomitant]
     Route: 041
     Dates: start: 20120108, end: 20120112
  7. HANP [Concomitant]
     Route: 041
     Dates: start: 20120108, end: 20120112
  8. SODIUM CHLORIDE [Concomitant]
     Route: 042
     Dates: start: 20120109, end: 20120112
  9. WARFARIN SODIUM [Concomitant]
     Route: 048
  10. POTASSIUM CHLORIDE [Concomitant]
     Route: 042
     Dates: start: 20120101, end: 20120112
  11. UNKNOWN MEDICATION [Concomitant]
     Route: 042
     Dates: start: 20120101, end: 20120112
  12. CUBICIN [Suspect]
     Indication: PRODUCT USED FOR UNKNOWN INDICATION
     Route: 041
     Dates: start: 20120107, end: 20120107
  13. SEISHOKU [Concomitant]
     Dosage: IN 60 MINUTES 9:00
     Route: 041
     Dates: start: 20120101, end: 20120106
  14. HUMULIN R [Concomitant]
     Route: 042
     Dates: start: 20120109, end: 20120112
  15. HUMULIN R [Concomitant]
     Route: 042
     Dates: start: 20120101, end: 20120108
  16. VANCOMYCIN [Concomitant]
     Route: 041
     Dates: start: 20120109, end: 20120112
  17. NORVASC [Concomitant]
     Route: 048
  18. SODIUM BICARBONATE [Concomitant]
     Route: 042
     Dates: start: 20120108, end: 20120108
  19. LEVOFLOXACIN [Suspect]
     Indication: CHOLECYSTITIS ACUTE
     Dosage: 30 MINUTES AFTER DINNER
     Route: 048
     Dates: start: 20120105, end: 20120105
  20. FAMOTIDINE [Concomitant]
     Route: 048
  21. GLYCEROL 2.6% [Concomitant]
     Indication: CONSTIPATION
     Route: 048
     Dates: start: 20120103, end: 20120103
  22. TELEMINSOFT [Concomitant]
     Route: 065
     Dates: start: 20120110, end: 20120110
  23. DEXTROSE [Concomitant]
     Route: 042
     Dates: start: 20120109, end: 20120112
  24. SODIUM BICARBONATE [Concomitant]
     Route: 042
     Dates: start: 20120109, end: 20120111
  25. DIART [Concomitant]
     Route: 048
     Dates: start: 20120108
  26. SEISHOKU [Concomitant]
     Route: 042
     Dates: start: 20120101, end: 20120108
  27. SEISHOKU [Concomitant]
     Dosage: IN 30 MINUTES 9:00
     Route: 041
     Dates: start: 20120107, end: 20120107
  28. LASIX [Concomitant]
     Route: 042
     Dates: start: 20120108, end: 20120108

REACTIONS (5)
  - TOXIC SKIN ERUPTION [None]
  - RESPIRATORY RATE INCREASED [None]
  - ABDOMINAL TENDERNESS [None]
  - SWELLING FACE [None]
  - OEDEMA PERIPHERAL [None]
